FAERS Safety Report 24263333 (Version 1)
Quarter: 2024Q3

REPORT INFORMATION
  Report Type: Spontaneous
  Country: US (occurrence: US)
  Receive Date: 20240829
  Receipt Date: 20240829
  Transmission Date: 20241017
  Serious: Yes (Other)
  Sender: DR REDDYS
  Company Number: None

PATIENT
  Age: 72 Year
  Sex: Female

DRUGS (16)
  1. DOCETAXEL [Suspect]
     Active Substance: DOCETAXEL\DOCETAXEL ANHYDROUS
     Indication: Ovarian cancer
     Dosage: 8 CYCLES
  2. DOCETAXEL [Suspect]
     Active Substance: DOCETAXEL\DOCETAXEL ANHYDROUS
     Indication: Metastasis
  3. DOCETAXEL [Suspect]
     Active Substance: DOCETAXEL\DOCETAXEL ANHYDROUS
     Indication: Metastases to peritoneum
  4. PREGABALIN [Suspect]
     Active Substance: PREGABALIN
     Indication: Cancer pain
     Dosage: SHE WAS TAKING PREGABALIN 50 MG TWICE DAILY AND IT WAS DISCONTINUED 5 DAYS LATER.
  5. CARBOPLATIN [Suspect]
     Active Substance: CARBOPLATIN
     Indication: Ovarian cancer
     Dosage: 5 CYCLES PLUS 8 CYCLES
  6. CARBOPLATIN [Suspect]
     Active Substance: CARBOPLATIN
     Indication: Metastasis
     Dosage: 5 CYCLES PLUS 8 CYCLES
  7. CARBOPLATIN [Suspect]
     Active Substance: CARBOPLATIN
     Indication: Metastases to peritoneum
  8. TAXOL [Suspect]
     Active Substance: PACLITAXEL
     Indication: Metastasis
     Dosage: 5 CYCLES
  9. TAXOL [Suspect]
     Active Substance: PACLITAXEL
     Indication: Ovarian cancer
  10. TAXOL [Suspect]
     Active Substance: PACLITAXEL
     Indication: Metastases to peritoneum
  11. IFOSFAMIDE [Suspect]
     Active Substance: IFOSFAMIDE
     Indication: Ovarian cancer recurrent
     Dosage: 5 CYCLES
  12. FENTANYL [Suspect]
     Active Substance: FENTANYL\FENTANYL CITRATE
     Indication: Cancer pain
     Dosage: 50 MCG/HOUR AND DISCONTINUED 5 DAYS LATER
     Route: 062
  13. PACLITAXEL [Suspect]
     Active Substance: PACLITAXEL
     Indication: Ovarian cancer recurrent
     Dosage: THE PATIENT WAS THEN TREATED WITH PACLITAXEL WITH 14 DAYS OF PALLIATIVE RADIATION THERAPY FOR SEVERE
  14. METHADONE [Concomitant]
     Active Substance: METHADONE HYDROCHLORIDE
     Indication: Cancer pain
     Dosage: THE PATIENT STARTED METHADONE 5MG BID. THE METHADONE WAS INCREASED TO TID AFTER FIVE DAYS?WITH GOOD
  15. METHADONE [Concomitant]
     Active Substance: METHADONE HYDROCHLORIDE
     Dosage: THE PATIENT STARTED METHADONE 5MG BID. THE METHADONE WAS INCREASED TO TID AFTER FIVE DAYS?WITH GOOD
  16. METHADONE [Concomitant]
     Active Substance: METHADONE HYDROCHLORIDE
     Dosage: HER FINAL DOSES WERE METHADONE 10 MG PO QID
     Route: 048

REACTIONS (2)
  - Polyneuropathy [Unknown]
  - Drug ineffective [Unknown]
